FAERS Safety Report 20189950 (Version 1)
Quarter: 2021Q4

REPORT INFORMATION
  Report Type: Spontaneous
  Country: JP (occurrence: JP)
  Receive Date: 20211215
  Receipt Date: 20211215
  Transmission Date: 20220303
  Serious: Yes (Hospitalization)
  Sender: FDA-Public Use
  Company Number: JP-SUNOVION-2021DSP014079

PATIENT
  Age: 74 Year
  Sex: Male
  Weight: 57.6 kg

DRUGS (11)
  1. LATUDA [Suspect]
     Active Substance: LURASIDONE HYDROCHLORIDE
     Indication: Bipolar disorder
     Dosage: 20 MG, QD
     Route: 048
     Dates: start: 20210506
  2. DAYVIGO [Concomitant]
     Active Substance: LEMBOREXANT
     Indication: Insomnia
     Dosage: 5 MG, QD
     Route: 048
     Dates: start: 20210506
  3. HERBALS [Concomitant]
     Active Substance: HERBALS
     Indication: Insomnia
     Dosage: 7.5 G, TID
     Route: 048
     Dates: start: 20210506
  4. NIFEDIPINE [Concomitant]
     Active Substance: NIFEDIPINE
     Indication: Hypertension
     Dosage: 20 MG, QD
     Route: 048
     Dates: start: 20210506
  5. CANDESARTAN CILEXETIL [Concomitant]
     Active Substance: CANDESARTAN CILEXETIL
     Indication: Hypertension
     Dosage: 8 MG, QD
     Route: 048
     Dates: start: 20210506
  6. NALFURAFINE HYDROCHLORIDE [Concomitant]
     Active Substance: NALFURAFINE HYDROCHLORIDE
     Indication: Pruritus
     Dosage: 2.5 ?G, QD
     Route: 048
     Dates: start: 20210506
  7. CLOPIDOGREL BISULFATE [Concomitant]
     Active Substance: CLOPIDOGREL BISULFATE
     Indication: Cerebral infarction
     Dosage: 75 MG, QD
     Route: 048
     Dates: start: 20210506
  8. TENELIGLIPTIN [Concomitant]
     Active Substance: TENELIGLIPTIN
     Indication: Diabetes mellitus
     Dosage: 20 MG, QD
     Route: 048
     Dates: start: 20210506
  9. CILOSTAZOL [Concomitant]
     Active Substance: CILOSTAZOL
     Indication: Cerebral infarction
     Dosage: 200 MG, BID
     Route: 048
     Dates: start: 20210506
  10. ALFAROL [Concomitant]
     Active Substance: ALFACALCIDOL
     Indication: Chronic kidney disease
     Dosage: 1 ?G, QD
     Route: 048
     Dates: start: 20210506
  11. FAMOTIDINE [Concomitant]
     Active Substance: FAMOTIDINE
     Indication: Gastrooesophageal reflux disease
     Dosage: 10 MG, QD
     Route: 048
     Dates: start: 20210506

REACTIONS (1)
  - Cognitive disorder [Not Recovered/Not Resolved]

NARRATIVE: CASE EVENT DATE: 20210801
